FAERS Safety Report 8005788-9 (Version None)
Quarter: 2011Q4

REPORT INFORMATION
  Report Type: 
  Country: None (occurrence: None)
  Receive Date: 20111223
  Receipt Date: 20111214
  Transmission Date: 20120403
  Serious: Yes (Hospitalization)
  Sender: FDA-Public Use
  Company Number: CH-BRISTOL-MYERS SQUIBB COMPANY-16295776

PATIENT
  Age: 58 Year
  Sex: Female

DRUGS (4)
  1. CONCERTA [Suspect]
     Route: 048
     Dates: start: 20060101, end: 20111021
  2. RITALIN [Suspect]
     Route: 048
     Dates: start: 20060101, end: 20111021
  3. ABILIFY [Suspect]
     Indication: BIPOLAR DISORDER
     Route: 048
     Dates: start: 20070101, end: 20111021
  4. BISOPROLOL FUMARATE [Concomitant]
     Indication: MIGRAINE
     Dosage: LOMG TERM
     Route: 048

REACTIONS (4)
  - HORNER'S SYNDROME [None]
  - HEMIPLEGIA [None]
  - SPEECH DISORDER [None]
  - BRAIN STEM INFARCTION [None]
